FAERS Safety Report 24662581 (Version 2)
Quarter: 2025Q3

REPORT INFORMATION
  Report Type: Report from Study
  Country: MX (occurrence: MX)
  Receive Date: 20241126
  Receipt Date: 20250725
  Transmission Date: 20251021
  Serious: Yes (Hospitalization, Disabling, Other)
  Sender: ABBVIE
  Company Number: MX-ABBOTT-2024A-1392043

PATIENT
  Age: 18 Year
  Sex: Female
  Weight: 41 kg

DRUGS (15)
  1. EPIVAL [Suspect]
     Active Substance: DIVALPROEX SODIUM
     Indication: Epilepsy
     Dosage: 1 TABLET AT NIGHT (250 MG) INSTEAD OF THE 500 MG
     Route: 048
  2. EPIVAL [Suspect]
     Active Substance: DIVALPROEX SODIUM
     Indication: Epilepsy
     Dosage: LATER FROM 6 TO 17 YEARS OLD SHE WAS PRESCRIBED ONE TABLET AT NIGHT
     Route: 048
  3. EPIVAL [Suspect]
     Active Substance: DIVALPROEX SODIUM
     Indication: Epilepsy
     Dosage: 1 TABLET IN THE MORNING
     Route: 048
  4. EPIVAL [Suspect]
     Active Substance: DIVALPROEX SODIUM
     Indication: Epilepsy
     Dosage: 3 PILLS A DAY, 1 IN THE MORNING, 1 IN THE AFTERNOON AND 1 AT NIGHT, PATIENT WAS 6 YEARS
     Route: 048
  5. EPIVAL [Suspect]
     Active Substance: DIVALPROEX SODIUM
     Indication: Epilepsy
     Dosage: 2 TABLETS A DAY, ONE IN THE MORNING AND ONE AT NIGHT
     Route: 048
     Dates: start: 20241015
  6. EPIVAL [Suspect]
     Active Substance: DIVALPROEX SODIUM
     Indication: Epilepsy
     Dosage: EPIVAL ER 500MG DAILY NIGHT AND ONE EPIVAL ER 250MG IN MORNING, ONE DAY YES AND ONE DAY NO
     Route: 048
  7. EPIVAL [Suspect]
     Active Substance: DIVALPROEX SODIUM
     Indication: Epilepsy
     Dosage: LATER FROM 6 TO 17 YEARS OLD SHE WAS PRESCRIBED ONE TABLET AT NIGHT
     Route: 048
  8. EPIVAL [Suspect]
     Active Substance: DIVALPROEX SODIUM
     Indication: Epilepsy
     Dosage: 3TAB A DAY, 1 IN THE MORNING, 1 IN THE AFTERNOON AND 1 AT NIGHT, WHILE PATIENT 6 YEARS OLD
     Route: 048
  9. EPIVAL [Suspect]
     Active Substance: DIVALPROEX SODIUM
     Indication: Epilepsy
     Dosage: 1 TABLET AT NIGHT (250 MG) INSTEAD OF THE 500 MG
     Route: 048
  10. EPIVAL [Suspect]
     Active Substance: DIVALPROEX SODIUM
     Indication: Epilepsy
     Dosage: 2 TABLETS A DAY, ONE IN THE MORNING AND ONE AT NIGHT
     Route: 048
     Dates: start: 20241015
  11. Hierro [Concomitant]
     Indication: Product used for unknown indication
  12. OXCARBAZEPINE [Concomitant]
     Active Substance: OXCARBAZEPINE
     Indication: Product used for unknown indication
     Dosage: 1 TABLET OF OXCARBAZEPINE AT NIGHT 600 MG AND ANOTHER IN THE MORNING OF 300 MG
  13. OXCARBAZEPINE [Concomitant]
     Active Substance: OXCARBAZEPINE
     Indication: Product used for unknown indication
     Dosage: 1 TABLET OF OXCARBAZEPINE AT NIGHT 600 MG AND ANOTHER IN THE MORNING OF 300 MG
  14. VALPROATE MAGNESIUM [Suspect]
     Active Substance: VALPROATE MAGNESIUM
     Indication: Product used for unknown indication
     Route: 065
  15. CYANOCOBALAMIN\FOLIC ACID\PYRIDOXINE HYDROCHLORIDE [Concomitant]
     Active Substance: CYANOCOBALAMIN\FOLIC ACID\PYRIDOXINE HYDROCHLORIDE
     Indication: Product used for unknown indication

REACTIONS (32)
  - Anaemia [Unknown]
  - Speech disorder [Unknown]
  - General physical health deterioration [Unknown]
  - Illness [Unknown]
  - Scoliosis [Unknown]
  - Hypersomnia [Unknown]
  - Nervous system disorder [Unknown]
  - Growth retardation [Unknown]
  - Condition aggravated [Unknown]
  - Limb asymmetry [Unknown]
  - Musculoskeletal stiffness [Unknown]
  - Paralysis [Unknown]
  - Epilepsy [Unknown]
  - Mobility decreased [Unknown]
  - Spinal disorder [Unknown]
  - Impaired healing [Unknown]
  - Muscle contractions involuntary [Unknown]
  - Headache [Unknown]
  - Pyrexia [Unknown]
  - Skin discolouration [Unknown]
  - Constipation [Unknown]
  - General physical condition abnormal [Recovered/Resolved]
  - Fall [Unknown]
  - Decreased appetite [Unknown]
  - Epilepsy [Recovered/Resolved]
  - Breast pain [Unknown]
  - Drug ineffective [Unknown]
  - Eating disorder [Unknown]
  - Rash [Unknown]
  - Body temperature abnormal [Unknown]
  - Epilepsy [Unknown]
  - Mood swings [Unknown]

NARRATIVE: CASE EVENT DATE: 20250516
